FAERS Safety Report 8396308-8 (Version None)
Quarter: 2012Q2

REPORT INFORMATION
  Report Type: 
  Country: None (occurrence: None)
  Receive Date: 20120530
  Receipt Date: 20120518
  Transmission Date: 20120825
  Serious: Yes (Other)
  Sender: FDA-Public Use
  Company Number: JP-ELI_LILLY_AND_COMPANY-JP201205007269

PATIENT
  Sex: Female

DRUGS (2)
  1. FORTEO [Suspect]
     Dosage: UNK
     Route: 058
     Dates: start: 20110901
  2. FORTEO [Suspect]
     Dosage: UNK
     Route: 058
     Dates: start: 20110101, end: 20110731

REACTIONS (1)
  - RETINAL HAEMORRHAGE [None]
